FAERS Safety Report 19088245 (Version 1)
Quarter: 2021Q2

REPORT INFORMATION
  Report Type: Spontaneous
  Country: CN (occurrence: CN)
  Receive Date: 20210402
  Receipt Date: 20210402
  Transmission Date: 20210717
  Serious: Yes (Hospitalization, Other)
  Sender: FDA-Public Use
  Company Number: CN-AMGEN-CHNSP2021033510

PATIENT
  Age: 70 Year
  Sex: Female
  Weight: 58 kg

DRUGS (6)
  1. CALTRATE D [CALCIUM CARBONATE;COLECALCIFEROL] [Concomitant]
     Dosage: ONE TABLET, QD
     Route: 048
     Dates: start: 20210316
  2. VITAMIN D [COLECALCIFEROL] [Concomitant]
     Active Substance: CHOLECALCIFEROL
     Dosage: 800 IU INTERNATIONAL UNIT(S), QD/ 2 CAPSULES
     Route: 048
     Dates: start: 20210316
  3. PROLIA [Suspect]
     Active Substance: DENOSUMAB
     Indication: OSTEOPOROSIS POSTMENOPAUSAL
     Dosage: 60 MILLIGRAM PER MILLILITRE, Q6MO
     Route: 058
     Dates: start: 20201127
  4. ZHEN YUAN JIAO NANG [Concomitant]
     Indication: DIZZINESS
     Dosage: 0.25 GRAM, TID
     Route: 048
  5. VITAMIN D [COLECALCIFEROL] [Concomitant]
     Active Substance: CHOLECALCIFEROL
     Indication: OSTEOPOROSIS POSTMENOPAUSAL
     Dosage: 800 IU INTERNATIONAL UNIT(S), QD
     Route: 048
     Dates: start: 20201012, end: 20210224
  6. CALTRATE D [CALCIUM CARBONATE;COLECALCIFEROL] [Concomitant]
     Indication: OSTEOPOROSIS POSTMENOPAUSAL
     Dosage: 600 MILLIGRAM, QD
     Route: 048
     Dates: start: 20201012, end: 20210224

REACTIONS (14)
  - Cerebral ischaemia [Unknown]
  - Carotid arteriosclerosis [Unknown]
  - Arterial insufficiency [Recovering/Resolving]
  - Ventricular extrasystoles [Unknown]
  - Supraventricular extrasystoles [Unknown]
  - Atrial tachycardia [Unknown]
  - Anxiety [Unknown]
  - Hypertension [Unknown]
  - Lacunar infarction [Unknown]
  - Thyroid mass [Unknown]
  - Cerebral arteriosclerosis [Unknown]
  - Somatic symptom disorder [Unknown]
  - Atrioventricular block first degree [Unknown]
  - Cough variant asthma [Not Recovered/Not Resolved]

NARRATIVE: CASE EVENT DATE: 202012
